FAERS Safety Report 7364994-7 (Version None)
Quarter: 2011Q1

REPORT INFORMATION
  Report Type: 
  Country: None (occurrence: None)
  Receive Date: 20110321
  Receipt Date: 20110310
  Transmission Date: 20110831
  Serious: Yes (Other)
  Sender: FDA-Public Use
  Company Number: US-SANOFI-AVENTIS-2011SA015491

PATIENT
  Age: 58 Year
  Sex: Female

DRUGS (7)
  1. LEVOXYL [Concomitant]
     Route: 048
     Dates: start: 20071201
  2. PLAVIX [Suspect]
     Indication: ATRIAL FIBRILLATION
     Route: 048
     Dates: start: 20070101
  3. CITRACAL [Concomitant]
     Route: 048
     Dates: start: 20070101
  4. CENTRUM SILVER [Concomitant]
     Route: 048
     Dates: start: 20100901
  5. METOPROLOL SUCCINATE [Concomitant]
     Route: 048
     Dates: start: 20070601
  6. MULTAQ [Concomitant]
     Route: 048
     Dates: start: 20100901
  7. VITAMIN D [Concomitant]
     Dosage: DOSE:50000 UNIT(S)
     Route: 048
     Dates: start: 20070101

REACTIONS (3)
  - OFF LABEL USE [None]
  - PAIN [None]
  - THYROID CANCER [None]
